FAERS Safety Report 5979105-X (Version None)
Quarter: 2008Q4

REPORT INFORMATION
  Report Type: 
  Country: None (occurrence: None)
  Receive Date: 20081204
  Receipt Date: 20080716
  Transmission Date: 20090506
  Serious: No
  Sender: FDA-Public Use
  Company Number: US-ABBOTT-08P-163-0463807-00

PATIENT
  Sex: Female
  Weight: 80.812 kg

DRUGS (13)
  1. TRICOR [Suspect]
     Indication: BLOOD CHOLESTEROL INCREASED
     Route: 048
     Dates: start: 20080701, end: 20080715
  2. TRICOR [Suspect]
     Indication: BLOOD TRIGLYCERIDES INCREASED
  3. LOVAZA [Concomitant]
     Indication: BLOOD TRIGLYCERIDES INCREASED
     Route: 048
  4. CLOPIDOGREL [Concomitant]
     Indication: ANTICOAGULANT THERAPY
     Route: 048
  5. CLOTRIMAZOLE [Concomitant]
     Indication: HYPERTENSION
     Dosage: 5/20MG TWICE A DAY
     Route: 048
     Dates: start: 20070101
  6. REMAX VITAMIN [Concomitant]
     Indication: VITAMIN SUPPLEMENTATION
     Route: 048
     Dates: start: 20070101
  7. CLONIDINE [Concomitant]
     Indication: HYPERTENSION
     Dosage: 0.1MG 2X DAILY, CAN TAKE 3 IF NEEDED
     Route: 048
  8. PROTONICS [Concomitant]
     Indication: GASTROOESOPHAGEAL REFLUX DISEASE
     Route: 048
     Dates: start: 20070101
  9. METOPROLOL TARTRATE [Concomitant]
     Indication: HYPERTENSION
     Route: 048
     Dates: start: 20070101
  10. ERGOCALCIFEROL [Concomitant]
     Indication: VITAMIN SUPPLEMENTATION
     Route: 048
     Dates: start: 20070101
  11. FUROSEMIDE [Concomitant]
     Indication: DIURETIC THERAPY
     Route: 048
     Dates: start: 20070101
  12. DIAZEPAM [Concomitant]
     Indication: ANXIETY
     Route: 048
  13. TRAMADOL HYDROCHLORIDE [Concomitant]
     Indication: SPINAL OSTEOARTHRITIS
     Route: 048
     Dates: start: 20080715

REACTIONS (2)
  - INCREASED TENDENCY TO BRUISE [None]
  - NAUSEA [None]
